FAERS Safety Report 5213532-3 (Version None)
Quarter: 2007Q1

REPORT INFORMATION
  Report Type: 
  Country: None (occurrence: None)
  Receive Date: 20070119
  Receipt Date: 20070110
  Transmission Date: 20070707
  Serious: Yes (Other)
  Sender: FDA-Public Use
  Company Number: TW-ROCHE-477374

PATIENT
  Age: 17 Year
  Sex: Male
  Weight: 65 kg

DRUGS (8)
  1. TAMIFLU [Suspect]
     Indication: INFLUENZA
     Route: 048
     Dates: start: 20061229, end: 20070101
  2. CLARITIN [Suspect]
     Indication: INFLUENZA
     Route: 048
     Dates: start: 20061228, end: 20061231
  3. AMANTADINE HCL [Suspect]
     Indication: INFLUENZA
     Route: 048
     Dates: start: 20061228, end: 20061231
  4. PANADOL [Concomitant]
     Indication: INFLUENZA
     Route: 048
     Dates: start: 20061228, end: 20061231
  5. TOCLASE [Concomitant]
     Indication: INFLUENZA
     Route: 048
     Dates: start: 20061228, end: 20061231
  6. PSEUDOEPHEDRINE HCL [Concomitant]
     Dates: start: 20061228, end: 20061231
  7. ZYRTEC [Concomitant]
     Dosage: GIVEN AT BED TIME.
     Dates: start: 20061228, end: 20061231
  8. BRUFEN [Concomitant]
     Dates: start: 20061228, end: 20061231

REACTIONS (10)
  - ABNORMAL BEHAVIOUR [None]
  - AMNESIA [None]
  - DELIRIUM [None]
  - DISTURBANCE IN ATTENTION [None]
  - HALLUCINATION [None]
  - HALLUCINATIONS, MIXED [None]
  - MENTAL DISORDER [None]
  - SENSORY DISTURBANCE [None]
  - SOMNOLENCE [None]
  - TONGUE DISORDER [None]
